FAERS Safety Report 6607400-X (Version None)
Quarter: 2010Q1

REPORT INFORMATION
  Report Type: 
  Country: None (occurrence: None)
  Receive Date: 20100129
  Receipt Date: 20100119
  Transmission Date: 20100710
  Serious: Yes (Other)
  Sender: FDA-Public Use
  Company Number: AEMNP201000016

PATIENT
  Sex: Male

DRUGS (1)
  1. KOATE-DVI [Suspect]
     Indication: HAEMOPHILIA
     Dosage: IV
     Route: 042

REACTIONS (1)
  - HEPATITIS A [None]
